FAERS Safety Report 4920349-3 (Version None)
Quarter: 2006Q1

REPORT INFORMATION
  Report Type: 
  Country: None (occurrence: None)
  Receive Date: 20060223
  Receipt Date: 20060206
  Transmission Date: 20060701
  Serious: Yes (Life-Threatening, Hospitalization)
  Sender: FDA-Public Use
  Company Number: JP-MERCK-0602USA02458

PATIENT
  Age: 74 Year
  Sex: Female

DRUGS (5)
  1. PEPCID RPD [Suspect]
     Indication: GASTRIC ULCER
     Route: 048
     Dates: start: 20050726, end: 20060202
  2. CALSLOT [Suspect]
     Indication: HYPERTENSION
     Route: 048
     Dates: start: 20000719, end: 20060202
  3. MUCOSTA [Concomitant]
     Indication: GASTRIC ULCER
     Route: 048
     Dates: start: 20050726, end: 20060202
  4. BIOFERMIN [Concomitant]
     Indication: CONSTIPATION
     Route: 048
     Dates: start: 20050726, end: 20060202
  5. OXETHAZAINE [Concomitant]
     Indication: GASTRIC ULCER
     Route: 048
     Dates: start: 20060106, end: 20060202

REACTIONS (2)
  - AGRANULOCYTOSIS [None]
  - VIRAL INFECTION [None]
